FAERS Safety Report 6103792-9 (Version None)
Quarter: 2009Q1

REPORT INFORMATION
  Report Type: 
  Country: None (occurrence: None)
  Receive Date: 20090305
  Receipt Date: 20090226
  Transmission Date: 20090719
  Serious: Yes (Hospitalization)
  Sender: FDA-Public Use
  Company Number: CA-JNJFOC-20080803296

PATIENT
  Sex: Male
  Weight: 63 kg

DRUGS (2)
  1. CONCERTA [Suspect]
     Route: 048
     Dates: start: 20071025
  2. CONCERTA [Suspect]
     Indication: ATTENTION DEFICIT/HYPERACTIVITY DISORDER
     Route: 048
     Dates: start: 20071025

REACTIONS (7)
  - CATATONIA [None]
  - DYSKINESIA [None]
  - EATING DISORDER [None]
  - FEELING ABNORMAL [None]
  - SCHIZOAFFECTIVE DISORDER [None]
  - WEIGHT DECREASED [None]
  - WITHDRAWAL SYNDROME [None]
